FAERS Safety Report 4596198-5 (Version None)
Quarter: 2005Q1

REPORT INFORMATION
  Report Type: 
  Country: None (occurrence: None)
  Receive Date: 20050225
  Receipt Date: 20050218
  Transmission Date: 20050727
  Serious: Yes (Life-Threatening)
  Sender: FDA-Public Use
  Company Number: K200500243

PATIENT
  Age: 81 Year
  Sex: Female

DRUGS (8)
  1. ALTACE [Suspect]
     Indication: ESSENTIAL HYPERTENSION
     Dosage: 10 MG, QD,
     Dates: start: 20040401, end: 20040713
  2. FRUSEMIDE (FUROSEMIDE) 160MG [Suspect]
     Indication: PULMONARY EMBOLISM
     Dosage: 160 MG, QD,
     Dates: start: 20040610, end: 20040713
  3. METOPROLOL TARTRATE [Suspect]
     Indication: ARRHYTHMIA
     Dosage: 200 MG, QD,
     Dates: start: 20040401, end: 20040713
  4. TIMPILO [Suspect]
     Indication: GLAUCOMA
     Dosage: 2 DF, QD,
  5. AMIODARONE HYDROCHLORIDE [Suspect]
     Indication: ARRHYTHMIA
     Dosage: 1 G, QD,
     Dates: start: 20040413, end: 20040713
  6. DIGOXIN [Suspect]
     Indication: ARRHYTHMIA
     Dosage: 125 UG, QD,
     Dates: start: 20040701, end: 20040713
  7. WARFARIN SODIUM [Suspect]
     Indication: ARRHYTHMIA
     Dosage: 1 MG, QD,
     Dates: start: 20040401, end: 20040713
  8. SPAN-K (POTASSIUM CHLORIDE) 2DF [Suspect]
     Dosage: 2 DF, QD,
     Dates: start: 20040615, end: 20040713

REACTIONS (4)
  - ATRIOVENTRICULAR BLOCK COMPLETE [None]
  - CARDIAC ARREST [None]
  - DRUG LEVEL INCREASED [None]
  - TORSADE DE POINTES [None]
